FAERS Safety Report 19838913 (Version 1)
Quarter: 2021Q3

REPORT INFORMATION
  Report Type: Spontaneous
  Country: GB (occurrence: GB)
  Receive Date: 20210915
  Receipt Date: 20210915
  Transmission Date: 20211014
  Serious: Yes (Hospitalization, Other)
  Sender: FDA-Public Use
  Company Number: None

PATIENT
  Age: 3 Year
  Sex: Female
  Weight: 15 kg

DRUGS (14)
  1. DEAD SEA SALTS [Concomitant]
  2. SPECIAL DUST MITE PROOF BEDDING [Concomitant]
  3. BETNOVATE [Suspect]
     Active Substance: BETAMETHASONE
  4. ZINC COMPLEX [Concomitant]
  5. VIT D AND E [Concomitant]
  6. BLEACH BATH [Concomitant]
  7. HYDROCORTISONE. [Suspect]
     Active Substance: HYDROCORTISONE
     Indication: ECZEMA
     Dates: start: 20171215, end: 20210101
  8. PAIN KILLER [Concomitant]
     Active Substance: UNSPECIFIED INGREDIENT
  9. CHERRY NIGHT [Concomitant]
  10. VIRIDIAN SLKIN SALVATION BALM [Concomitant]
  11. ZINC BANDAGES [Concomitant]
  12. CALCIUM COMPLEX [Concomitant]
  13. PROBIOTICS [Concomitant]
     Active Substance: PROBIOTICS NOS
  14. APPLE CIDER VINIGAR [Concomitant]

REACTIONS (24)
  - Swelling face [None]
  - Erythema [None]
  - Somnolence [None]
  - Eczema [None]
  - Hyperhidrosis [None]
  - Pain in extremity [None]
  - Acne [None]
  - Sleep disorder [None]
  - Sepsis [None]
  - Joint swelling [None]
  - Skin burning sensation [None]
  - Immobile [None]
  - Peripheral swelling [None]
  - Tremor [None]
  - Lymphadenopathy [None]
  - Ill-defined disorder [None]
  - Steroid withdrawal syndrome [None]
  - Arthropathy [None]
  - Neoplasm malignant [None]
  - Crying [None]
  - Arthralgia [None]
  - Skin discolouration [None]
  - Feeling cold [None]
  - Systemic lupus erythematosus [None]

NARRATIVE: CASE EVENT DATE: 20210101
